FAERS Safety Report 21641223 (Version 1)
Quarter: 2022Q4

REPORT INFORMATION
  Report Type: Report from Study
  Country: US (occurrence: US)
  Receive Date: 20221125
  Receipt Date: 20221125
  Transmission Date: 20230112
  Serious: Yes (Other)
  Sender: FDA-Public Use
  Company Number: US-ABBVIE-22K-163-4533457-00

PATIENT
  Age: 68 Year
  Sex: Male
  Weight: 112.49 kg

DRUGS (3)
  1. HUMIRA [Suspect]
     Active Substance: ADALIMUMAB
     Indication: Hidradenitis
     Dosage: CF?LAST ADMIN DATE- 2022
     Route: 058
     Dates: start: 20220202
  2. LOVASTATIN [Concomitant]
     Active Substance: LOVASTATIN
     Indication: High density lipoprotein decreased
     Dosage: FREQUENCY TEXT: ONCE DAILY
     Route: 048
     Dates: start: 1993
  3. LEVOTHYROXINE [Concomitant]
     Active Substance: LEVOTHYROXINE
     Indication: Hypothyroidism
     Dosage: FREQUENCY TEXT: ONCE DAILY
     Route: 048
     Dates: start: 20220819

REACTIONS (1)
  - Thyroidectomy [Recovered/Resolved]

NARRATIVE: CASE EVENT DATE: 20220708
